FAERS Safety Report 7478506-0 (Version None)
Quarter: 2011Q2

REPORT INFORMATION
  Report Type: 
  Country: None (occurrence: None)
  Receive Date: 20110513
  Receipt Date: 20110503
  Transmission Date: 20111010
  Serious: Yes (Hospitalization)
  Sender: FDA-Public Use
  Company Number: PHHY2011FR38265

PATIENT
  Sex: Female

DRUGS (15)
  1. MYOLASTAN [Suspect]
     Indication: SCIATICA
     Dosage: 1.5 DF, QD
     Route: 048
     Dates: start: 20110304, end: 20110319
  2. OMEPRAZOLE [Concomitant]
     Dosage: 10 MG, QD
     Dates: start: 20110304
  3. SKENAN [Concomitant]
     Dosage: UNK
     Dates: start: 20110314
  4. ACTISKENAN [Concomitant]
     Dosage: UNK
     Dates: start: 20110314
  5. KETOPROFEN [Suspect]
     Indication: SCIATICA
     Dosage: 100 MG, TID
     Route: 042
     Dates: start: 20110314, end: 20110316
  6. ACETAMINOPHEN [Suspect]
     Indication: SCIATICA
     Dosage: 4 DF, QD
     Route: 048
     Dates: start: 20110304, end: 20110314
  7. ANAFRANIL [Concomitant]
     Dosage: UNK
     Dates: start: 20101001, end: 20110401
  8. XANAX [Concomitant]
     Dosage: UNK
     Dates: start: 20110319
  9. ESOMEPRAZOLE SODIUM [Concomitant]
     Dosage: UNK
     Dates: start: 20110314
  10. CLONAZEPAM [Concomitant]
     Dosage: UNK
     Dates: start: 20110326
  11. ACETAMINOPHEN [Suspect]
     Indication: SCIATICA
     Dosage: 3 G, QD
     Route: 048
     Dates: start: 20110316, end: 20110317
  12. MEPRONIZINE [Suspect]
     Dosage: 4 DF, QD
     Route: 048
     Dates: start: 20101001, end: 20110318
  13. OXYNORM [Concomitant]
     Dosage: UNK
     Dates: start: 20110314
  14. DICLOFENAC SODIUM [Suspect]
     Indication: SCIATICA
     Dosage: 75 MG, BID
     Dates: start: 20110304, end: 20110314
  15. KETOPROFEN [Suspect]
     Indication: SCIATICA
     Dosage: 200 MG, QD
     Route: 048
     Dates: start: 20110316

REACTIONS (5)
  - CYTOLYTIC HEPATITIS [None]
  - ALANINE AMINOTRANSFERASE INCREASED [None]
  - ASPARTATE AMINOTRANSFERASE INCREASED [None]
  - BLOOD ALKALINE PHOSPHATASE INCREASED [None]
  - GAMMA-GLUTAMYLTRANSFERASE INCREASED [None]
